FAERS Safety Report 7485837-7 (Version None)
Quarter: 2011Q2

REPORT INFORMATION
  Report Type: 
  Country: None (occurrence: None)
  Receive Date: 20110517
  Receipt Date: 20110428
  Transmission Date: 20111010
  Serious: No
  Sender: FDA-Public Use
  Company Number: US-B.I. PHARMACEUTICALS,INC./RIDGEFIELD-2011-BP-06668BP

PATIENT
  Sex: Female

DRUGS (8)
  1. TRIAMTERENE [Concomitant]
     Route: 048
  2. LISINOPRIL [Concomitant]
  3. LEVOTHYROXINE SODIUM [Concomitant]
     Indication: HYPOTHYROIDISM
     Route: 048
  4. ASPIRIN [Concomitant]
     Indication: PROPHYLAXIS
     Dosage: 81 MG
     Route: 048
  5. PRADAXA [Suspect]
     Indication: ATRIAL FIBRILLATION
     Dosage: 150 MG
     Route: 048
     Dates: start: 20110203
  6. CRESTOR [Concomitant]
  7. METOPROLOL SUCCINATE [Concomitant]
     Route: 048
     Dates: end: 20110331
  8. AMIODARONE HCL [Concomitant]
     Route: 048

REACTIONS (3)
  - ASTHENIA [None]
  - JOINT SWELLING [None]
  - FATIGUE [None]
